FAERS Safety Report 6587951-7 (Version None)
Quarter: 2010Q1

REPORT INFORMATION
  Report Type: 
  Country: None (occurrence: None)
  Receive Date: 20100218
  Receipt Date: 20091112
  Transmission Date: 20100710
  Serious: No
  Sender: FDA-Public Use
  Company Number: US-BRISTOL-MYERS SQUIBB COMPANY-14820112

PATIENT
  Sex: Female

DRUGS (1)
  1. LISODREN TABS 500 MG [Suspect]
     Route: 048
     Dates: start: 20090828

REACTIONS (2)
  - ACCIDENTAL EXPOSURE [None]
  - CONTUSION [None]
